FAERS Safety Report 13919662 (Version 1)
Quarter: 2017Q3

REPORT INFORMATION
  Report Type: Spontaneous
  Country: DE (occurrence: DE)
  Receive Date: 20170830
  Receipt Date: 20170830
  Transmission Date: 20171127
  Serious: Yes (Congenital Anomaly)
  Sender: FDA-Public Use
  Company Number: DE-SUN PHARMACEUTICAL INDUSTRIES LTD-2017RR-148525

PATIENT
  Age: 1 Day
  Sex: Female
  Weight: 1.17 kg

DRUGS (3)
  1. FOLIO FORTE [Concomitant]
     Active Substance: FOLIC ACID\VITAMINS
     Indication: PROPHYLAXIS OF NEURAL TUBE DEFECT
     Dosage: 0.8 MG, DAILY, 5.1-29.2 GESTATIONAL WEEK
     Route: 064
     Dates: start: 20160608, end: 20161024
  2. LEVETIRACETAM. [Suspect]
     Active Substance: LEVETIRACETAM
     Indication: EPILEPSY
     Dosage: 2500[MG/D]/ 1000-0-1500 MG/G, 0-29.2 GESTATIONAL WEEK
     Route: 064
     Dates: start: 20160503, end: 20161024
  3. CELESTAN [Concomitant]
     Active Substance: BETAMETHASONE
     Indication: MATERNAL THERAPY TO ENHANCE FOETAL LUNG MATURITY
     Dosage: 29.1-29.2 GESTATIONAL WEEK
     Route: 064
     Dates: start: 20161023, end: 20161024

REACTIONS (4)
  - Pulmonary valve stenosis congenital [Not Recovered/Not Resolved]
  - Patent ductus arteriosus [Recovered/Resolved]
  - Cerebral haemorrhage neonatal [Recovering/Resolving]
  - Atrial septal defect [Not Recovered/Not Resolved]

NARRATIVE: CASE EVENT DATE: 20161024
